FAERS Safety Report 7944872-2 (Version None)
Quarter: 2011Q4

REPORT INFORMATION
  Report Type: 
  Country: None (occurrence: None)
  Receive Date: 20111129
  Receipt Date: 20110916
  Transmission Date: 20120403
  Serious: No
  Sender: FDA-Public Use
  Company Number: US-MYLANLABS-2011S1017249

PATIENT
  Age: 72 Year
  Sex: Female

DRUGS (11)
  1. AMLODIPINE BESYLATE [Suspect]
     Indication: BLOOD PRESSURE
     Route: 048
     Dates: start: 20100401
  2. MULTIVITAMIN [Concomitant]
  3. STOOL SOFTENER [Concomitant]
  4. SIMVASTATIN [Concomitant]
  5. CALCIUM CARBONATE [Concomitant]
  6. SINGULAIR [Concomitant]
  7. FISH OIL [Concomitant]
  8. ASPIRIN [Concomitant]
  9. NIASPAN [Concomitant]
  10. VITAMIN E [Concomitant]
  11. AVAPRO [Concomitant]

REACTIONS (1)
  - FOREIGN BODY [None]
